FAERS Safety Report 19297551 (Version 2)
Quarter: 2021Q2

REPORT INFORMATION
  Report Type: Report from Study
  Country: IT (occurrence: IT)
  Receive Date: 20210524
  Receipt Date: 20210607
  Transmission Date: 20210717
  Serious: Yes (Other)
  Sender: FDA-Public Use
  Company Number: IT-TAKEDA-IT202026207

PATIENT
  Age: 72 Year
  Sex: Female

DRUGS (7)
  1. TEDUGLUTIDE [Suspect]
     Active Substance: TEDUGLUTIDE
     Indication: SHORT-BOWEL SYNDROME
     Dosage: 0.05 MILLIGRAM/KILOGRAM,  (3.2000), 7 DOSES PER WEEK
     Route: 065
     Dates: start: 20190401
  2. TEDUGLUTIDE [Suspect]
     Active Substance: TEDUGLUTIDE
     Indication: SHORT-BOWEL SYNDROME
     Dosage: 0.05 MILLIGRAM/KILOGRAM,  (3.2000), 7 DOSES PER WEEK
     Route: 065
     Dates: start: 20190401
  3. AMOXICILLIN. [Concomitant]
     Active Substance: AMOXICILLIN
     Indication: DENTAL CARE
  4. TEDUGLUTIDE [Suspect]
     Active Substance: TEDUGLUTIDE
     Indication: SHORT-BOWEL SYNDROME
     Dosage: 0.05 MILLIGRAM/KILOGRAM,  (3.2000), 7 DOSES PER WEEK
     Route: 065
     Dates: start: 20190401
  5. CITRAK [Concomitant]
     Indication: NUTRITIONAL SUPPLEMENTATION
  6. TEDUGLUTIDE [Suspect]
     Active Substance: TEDUGLUTIDE
     Indication: SHORT-BOWEL SYNDROME
     Dosage: 0.05 MILLIGRAM/KILOGRAM,  (3.2000), 7 DOSES PER WEEK
     Route: 065
     Dates: start: 20190401
  7. LOPERAMIDE [Concomitant]
     Active Substance: LOPERAMIDE
     Indication: NUTRITIONAL SUPPLEMENTATION

REACTIONS (1)
  - Diverticulitis [Not Recovered/Not Resolved]

NARRATIVE: CASE EVENT DATE: 20200528
